FAERS Safety Report 10865149 (Version 1)
Quarter: 2015Q1

REPORT INFORMATION
  Report Type: Report from Study
  Country: US (occurrence: US)
  Receive Date: 20150224
  Receipt Date: 20150224
  Transmission Date: 20150721
  Serious: No
  Sender: FDA-Public Use
  Company Number: US-MYLANLABS-2014S1009054

PATIENT
  Sex: Male
  Weight: 65.77 kg

DRUGS (7)
  1. AMNESTEEM [Suspect]
     Active Substance: ISOTRETINOIN
     Dosage: 80 MG,QOD
     Route: 048
     Dates: end: 20140331
  2. CLARAVIS [Suspect]
     Active Substance: ISOTRETINOIN
     Dosage: 60 MG,QD
  3. CLARAVIS [Suspect]
     Active Substance: ISOTRETINOIN
     Indication: ACNE CYSTIC
  4. CLARAVIS [Suspect]
     Active Substance: ISOTRETINOIN
     Dosage: 40 MG,QD
     Dates: start: 20131017
  5. AMNESTEEM [Suspect]
     Active Substance: ISOTRETINOIN
     Dosage: 120 MG,QOD
     Route: 048
     Dates: end: 20140331
  6. CLARAVIS [Suspect]
     Active Substance: ISOTRETINOIN
     Dosage: 80 MG,QD
  7. AMNESTEEM [Suspect]
     Active Substance: ISOTRETINOIN
     Indication: ACNE CYSTIC

REACTIONS (2)
  - Mood altered [Recovered/Resolved]
  - Aggression [Recovered/Resolved]
